FAERS Safety Report 6566415-0 (Version None)
Quarter: 2010Q1

REPORT INFORMATION
  Report Type: 
  Country: None (occurrence: None)
  Receive Date: 20100202
  Receipt Date: 20100118
  Transmission Date: 20100710
  Serious: Yes (Other)
  Sender: FDA-Public Use
  Company Number: PHHY2010NZ02978

PATIENT
  Age: 48 Year
  Sex: Female

DRUGS (8)
  1. CARBAMAZEPINE [Suspect]
     Indication: EPILEPSY
     Dosage: UNK
  2. CARBAMAZEPINE [Suspect]
     Dosage: 100 UG/DAY
  3. PHENYTOIN [Suspect]
     Indication: EPILEPSY
     Dosage: 400 MG/DAY
  4. PHENYTOIN [Suspect]
     Dosage: 300 MG/DAY
  5. LEVOTHYROXINE SODIUM [Suspect]
     Indication: HYPOTHYROIDISM
     Dosage: 250 UG/DAY
  6. LEVOTHYROXINE SODIUM [Suspect]
     Dosage: 200 UG/DAY
  7. LEVOTHYROXINE SODIUM [Suspect]
     Dosage: 100 UG/DAY
  8. LAMOTRIGINE [Concomitant]
     Dosage: 100 UG/ DAY

REACTIONS (10)
  - ANTIPSYCHOTIC DRUG LEVEL INCREASED [None]
  - ATAXIA [None]
  - COORDINATION ABNORMAL [None]
  - DIPLOPIA [None]
  - DYSARTHRIA [None]
  - FALL [None]
  - HYPOREFLEXIA [None]
  - MOVEMENT DISORDER [None]
  - NYSTAGMUS [None]
  - VISUAL IMPAIRMENT [None]
